FAERS Safety Report 20419822 (Version 1)
Quarter: 2022Q1

REPORT INFORMATION
  Report Type: Spontaneous
  Country: NP (occurrence: NP)
  Receive Date: 20220203
  Receipt Date: 20220203
  Transmission Date: 20220423
  Serious: Yes (Other)
  Sender: FDA-Public Use
  Company Number: NP-CIPLA (EU) LIMITED-2022NP00198

PATIENT

DRUGS (4)
  1. BUDESONIDE\FORMOTEROL FUMARATE [Suspect]
     Active Substance: BUDESONIDE\FORMOTEROL FUMARATE
     Indication: Asthma
     Dosage: 2 PUFFS, BID (REGULARLY)
     Route: 048
     Dates: start: 2021
  2. BUDESONIDE [Suspect]
     Active Substance: BUDESONIDE
     Indication: Asthma
     Dosage: UNK
     Route: 065
  3. ALBUTEROL [Suspect]
     Active Substance: ALBUTEROL
     Indication: Asthma
     Dosage: UNK
     Route: 065
  4. LUCAST [Concomitant]
     Indication: Asthma
     Dosage: UNK (INTERMITTENTLY)
     Route: 065

REACTIONS (6)
  - Device loosening [Unknown]
  - Discomfort [Unknown]
  - Drug effect less than expected [Unknown]
  - Device ineffective [Unknown]
  - Device malfunction [Unknown]
  - Drug ineffective [Unknown]

NARRATIVE: CASE EVENT DATE: 20211001
